FAERS Safety Report 6920133-5 (Version None)
Quarter: 2010Q3

REPORT INFORMATION
  Report Type: 
  Country: None (occurrence: None)
  Receive Date: 20100730
  Receipt Date: 20100507
  Transmission Date: 20110219
  Serious: Yes (Life-Threatening)
  Sender: FDA-Public Use
  Company Number: OMPQ-PR-1005S-0300

PATIENT
  Age: 55 Year
  Sex: Female

DRUGS (1)
  1. OMNIPAQUE 140 [Suspect]
     Indication: PULMONARY EMBOLISM
     Dosage: 100 ML, SINGLE DOSE, I.V.
     Route: 042
     Dates: start: 20100418, end: 20100418

REACTIONS (4)
  - ANAPHYLACTOID REACTION [None]
  - OXYGEN SATURATION DECREASED [None]
  - RESPIRATORY FAILURE [None]
  - VENTRICULAR TACHYCARDIA [None]
